FAERS Safety Report 14313231 (Version 1)
Quarter: 2017Q4

REPORT INFORMATION
  Report Type: Spontaneous
  Country: US (occurrence: US)
  Receive Date: 20171220
  Receipt Date: 20171220
  Transmission Date: 20180321
  Serious: Yes (Other)
  Sender: FDA-Public Use
  Company Number: None

PATIENT
  Age: 57 Year
  Sex: Female
  Weight: 81 kg

DRUGS (5)
  1. AMLODIPINE [Concomitant]
     Active Substance: AMLODIPINE BESYLATE
  2. MULTIVITAMIN [Concomitant]
     Active Substance: VITAMINS
  3. IBUPROFEN. [Concomitant]
     Active Substance: IBUPROFEN
  4. LUMIGAN [Suspect]
     Active Substance: BIMATOPROST
     Indication: INTRAOCULAR PRESSURE INCREASED
     Dosage: ?          QUANTITY:1 DROP(S);?
     Route: 047
     Dates: start: 20170715, end: 20171109
  5. OCUVITE [Concomitant]
     Active Substance: VITAMINS

REACTIONS (6)
  - Trichiasis [None]
  - Vision blurred [None]
  - Vitreous floaters [None]
  - Foreign body sensation in eyes [None]
  - Eye discharge [None]
  - Dry eye [None]

NARRATIVE: CASE EVENT DATE: 20171109
